FAERS Safety Report 11198594 (Version 1)
Quarter: 2015Q2

REPORT INFORMATION
  Report Type: Report from Study
  Country: US (occurrence: US)
  Receive Date: 20150618
  Receipt Date: 20150618
  Transmission Date: 20150821
  Serious: Yes (Hospitalization, Disabling)
  Sender: FDA-Public Use
  Company Number: US-JNJFOC-20150607114

PATIENT
  Sex: Female

DRUGS (1)
  1. XARELTO [Suspect]
     Active Substance: RIVAROXABAN
     Indication: THROMBOSIS
     Route: 048
     Dates: start: 20111121

REACTIONS (4)
  - Movement disorder [Unknown]
  - Internal haemorrhage [Unknown]
  - Adverse drug reaction [Unknown]
  - Thrombosis [Recovered/Resolved]
